FAERS Safety Report 5723433-X (Version None)
Quarter: 2008Q2

REPORT INFORMATION
  Report Type: 
  Country: None (occurrence: None)
  Receive Date: 20080430
  Receipt Date: 20080422
  Transmission Date: 20081010
  Serious: Yes (Hospitalization)
  Sender: FDA-Public Use
  Company Number: FR-BAYER-200710509BFR

PATIENT
  Age: 6 Year
  Sex: Female
  Weight: 19 kg

DRUGS (5)
  1. CIPROFLOXACIN HCL [Suspect]
     Indication: BURKHOLDERIA CEPACIA INFECTION
     Route: 048
     Dates: start: 20070729, end: 20070729
  2. PIPERACILLIN [Suspect]
     Indication: BURKHOLDERIA CEPACIA INFECTION
     Dosage: TOTAL DAILY DOSE: 6 G
     Route: 042
     Dates: start: 20070717, end: 20070731
  3. BACTRIM [Concomitant]
     Indication: BURKHOLDERIA CEPACIA INFECTION
     Route: 048
     Dates: start: 20070717
  4. CREON [Concomitant]
     Indication: UNEVALUABLE EVENT
     Route: 065
  5. TOBI [Concomitant]
     Indication: UNEVALUABLE EVENT
     Route: 055

REACTIONS (1)
  - NEUTROPENIA [None]
